FAERS Safety Report 5139788-3 (Version None)
Quarter: 2006Q4

REPORT INFORMATION
  Report Type: 
  Country: None (occurrence: None)
  Receive Date: 20061025
  Receipt Date: 20061010
  Transmission Date: 20070319
  Serious: Yes (Hospitalization)
  Sender: FDA-Public Use
  Company Number: 2006CT000776

PATIENT
  Age: 26 Year
  Sex: Female

DRUGS (6)
  1. VENTAVIS [Suspect]
     Indication: PULMONARY HYPERTENSION
     Dosage: 2.5 UG; 9XD; INH;  5 UG; 9XD; INH
     Route: 055
     Dates: start: 20060619, end: 20060707
  2. VENTAVIS [Suspect]
     Indication: PULMONARY HYPERTENSION
     Dosage: 2.5 UG; 9XD; INH;  5 UG; 9XD; INH
     Route: 055
     Dates: start: 20060707
  3. VENTAVIS [Suspect]
     Indication: PULMONARY HYPERTENSION
     Dosage: 5 UGP 7 TO 8X/DAY; INH
     Route: 055
     Dates: end: 20061011
  4. DIGOXIN [Concomitant]
  5. OXYGEN [Concomitant]
  6. POTASSIUM CHLORIDE [Concomitant]

REACTIONS (5)
  - BRADYCARDIA [None]
  - NAUSEA [None]
  - PAIN IN JAW [None]
  - PULMONARY ARTERIAL PRESSURE INCREASED [None]
  - VOMITING [None]
